FAERS Safety Report 13958249 (Version 1)
Quarter: 2017Q3

REPORT INFORMATION
  Report Type: Spontaneous
  Country: US (occurrence: US)
  Receive Date: 20170911
  Receipt Date: 20170911
  Transmission Date: 20171128
  Serious: No
  Sender: FDA-Public Use
  Company Number: US-ROCHE-1055138

PATIENT
  Sex: Female

DRUGS (2)
  1. RITUXAN [Suspect]
     Active Substance: RITUXIMAB
     Indication: MULTIFOCAL MOTOR NEUROPATHY
     Route: 042
     Dates: start: 2001
  2. RITUXAN [Suspect]
     Active Substance: RITUXIMAB
     Route: 065

REACTIONS (3)
  - Blood immunoglobulin M decreased [Not Recovered/Not Resolved]
  - Blood immunoglobulin G decreased [Not Recovered/Not Resolved]
  - Immunosuppression [Unknown]
